FAERS Safety Report 18603781 (Version 2)
Quarter: 2020Q4

REPORT INFORMATION
  Report Type: Spontaneous
  Country: US (occurrence: US)
  Receive Date: 20201211
  Receipt Date: 20201219
  Transmission Date: 20210114
  Serious: Yes (Other)
  Sender: FDA-Public Use
  Company Number: US-AUROBINDO-AUR-APL-2020-059498

PATIENT
  Sex: Male

DRUGS (2)
  1. LAMOTRIGINE TABLETS 200 MG [Suspect]
     Active Substance: LAMOTRIGINE
     Indication: DEPRESSION
     Dosage: 400 MILLIGRAM, DAILY
     Route: 065
  2. LAMOTRIGINE TABLETS 100 MG [Suspect]
     Active Substance: LAMOTRIGINE
     Indication: DEPRESSION
     Dosage: 100 MILLIGRAM, TWO TIMES A DAY
     Route: 065

REACTIONS (9)
  - Therapy interrupted [Unknown]
  - Coordination abnormal [Unknown]
  - Fall [Unknown]
  - Feeling abnormal [Unknown]
  - Walking aid user [Recovered/Resolved]
  - Off label use [Unknown]
  - Mental impairment [Unknown]
  - Depression [Unknown]
  - Drug ineffective [Unknown]
